FAERS Safety Report 4376225-0 (Version None)
Quarter: 2004Q2

REPORT INFORMATION
  Report Type: 
  Country: None (occurrence: None)
  Receive Date: 20040607
  Receipt Date: 20040427
  Transmission Date: 20050107
  Serious: Yes (Other)
  Sender: FDA-Public Use
  Company Number: US-SHR-04-024547

PATIENT
  Age: 21 Year
  Sex: Female

DRUGS (1)
  1. CAMPATH [Suspect]
     Indication: PANCREAS TRANSPLANT
     Dosage: MONTHLY, POST TRANSPLANT
     Dates: start: 20031201

REACTIONS (2)
  - LOBAR PNEUMONIA [None]
  - URTICARIA [None]
